FAERS Safety Report 8407743-3 (Version None)
Quarter: 2012Q2

REPORT INFORMATION
  Report Type: 
  Country: None (occurrence: None)
  Receive Date: 20120604
  Receipt Date: 20120531
  Transmission Date: 20120825
  Serious: Yes (Other)
  Sender: FDA-Public Use
  Company Number: US-GLAXOSMITHKLINE-A0973943A

PATIENT
  Age: 58 Year
  Sex: Female

DRUGS (24)
  1. VENTOLIN [Suspect]
     Indication: ASTHMA
     Route: 055
     Dates: start: 20120416
  2. STOOL SOFTENER [Concomitant]
  3. ASPIRIN [Concomitant]
  4. DIURETIC [Concomitant]
  5. ALOE VERA [Concomitant]
  6. AMBIEN [Concomitant]
  7. GLUCOSAMINE CHONDROITIN [Concomitant]
  8. FOLIC ACID [Concomitant]
  9. CALCIUM WITH VITAMIN D [Concomitant]
  10. MELATONIN [Concomitant]
  11. SUDAFED 12 HOUR [Concomitant]
  12. VITAMIN D [Concomitant]
  13. VITAMIN C [Concomitant]
  14. TRAMADOL HCL [Concomitant]
  15. ADVAIR DISKUS 100/50 [Suspect]
     Indication: ASTHMA
     Dosage: 1PUFF VARIABLE DOSE
     Route: 055
     Dates: start: 20070101
  16. ZITHROMAX [Concomitant]
     Indication: SINUSITIS
  17. SYNTHROID [Concomitant]
  18. MUCINEX [Concomitant]
  19. MULTI-VITAMIN [Concomitant]
  20. TYLENOL ARTHRITIS [Concomitant]
  21. FLEXERIL [Concomitant]
  22. IBUPROFEN [Concomitant]
  23. OMEPRAZOLE [Concomitant]
  24. UNKNOWN MEDICATION [Concomitant]

REACTIONS (10)
  - HYPOAESTHESIA [None]
  - PANIC ATTACK [None]
  - PARAESTHESIA [None]
  - MOVEMENT DISORDER [None]
  - CONVULSION [None]
  - DYSPNOEA [None]
  - DRUG INEFFECTIVE [None]
  - GRUNTING [None]
  - RESPIRATORY DISTRESS [None]
  - PRODUCT QUALITY ISSUE [None]
